FAERS Safety Report 11106692 (Version 1)
Quarter: 2015Q2

REPORT INFORMATION
  Report Type: Spontaneous
  Country: US (occurrence: None)
  Receive Date: 20150511
  Receipt Date: 20150511
  Transmission Date: 20150821
  Serious: Yes (Other)
  Sender: FDA-Public Use
  Company Number: None

PATIENT
  Age: 48 Year
  Sex: Male
  Weight: 90.72 kg

DRUGS (1)
  1. ZOLOFT [Suspect]
     Active Substance: SERTRALINE HYDROCHLORIDE
     Indication: BLOOD CHOLESTEROL

REACTIONS (7)
  - Vomiting [None]
  - Abdominal discomfort [None]
  - Oesophageal spasm [None]
  - Product quality issue [None]
  - Diarrhoea [None]
  - Disease recurrence [None]
  - Depression [None]

NARRATIVE: CASE EVENT DATE: 20150422
